FAERS Safety Report 7963660-4 (Version None)
Quarter: 2011Q4

REPORT INFORMATION
  Report Type: 
  Country: None (occurrence: None)
  Receive Date: 20111208
  Receipt Date: 20111201
  Transmission Date: 20120403
  Serious: No
  Sender: FDA-Public Use
  Company Number: US-BAYER-2011-106605

PATIENT

DRUGS (1)
  1. ALEVE (CAPLET) [Suspect]
     Indication: SINUS HEADACHE
     Route: 048

REACTIONS (4)
  - PRODUCT USED FOR UNKNOWN INDICATION [None]
  - NAUSEA [None]
  - SINUS HEADACHE [None]
  - HEAD DISCOMFORT [None]
